FAERS Safety Report 9170568 (Version 2)
Quarter: 2013Q1

REPORT INFORMATION
  Report Type: Spontaneous
  Country: US (occurrence: None)
  Receive Date: 20130307
  Receipt Date: 20130318
  Transmission Date: 20140127
  Serious: Yes (Other)
  Sender: FDA-Public Use
  Company Number: US-1196863

PATIENT
  Sex: Female

DRUGS (4)
  1. MIOSTAT [Suspect]
     Indication: CATARACT OPERATION
     Dosage: (INTRAOCULAR)
     Route: 031
     Dates: start: 20120221, end: 20120221
  2. VANCOMYCIN [Concomitant]
  3. XYLOCAINE [Concomitant]
  4. DUOVISC [Concomitant]

REACTIONS (2)
  - Toxic anterior segment syndrome [None]
  - Post procedural complication [None]
